FAERS Safety Report 19405008 (Version 3)
Quarter: 2021Q3

REPORT INFORMATION
  Report Type: Spontaneous
  Country: ES (occurrence: ES)
  Receive Date: 20210611
  Receipt Date: 20210812
  Transmission Date: 20211014
  Serious: Yes (Death, Hospitalization, Other)
  Sender: FDA-Public Use
  Company Number: ES-ROCHE-2847306

PATIENT
  Age: 56 Year
  Sex: Female
  Weight: 57.4 kg

DRUGS (13)
  1. FUROSEMIDE. [Concomitant]
     Active Substance: FUROSEMIDE
     Route: 048
  2. TRYPTIZOL [Concomitant]
     Active Substance: AMITRIPTYLINE HYDROCHLORIDE
  3. FERBISOL [Concomitant]
  4. KREON [Concomitant]
     Active Substance: PANCRELIPASE
  5. OCRELIZUMAB. [Suspect]
     Active Substance: OCRELIZUMAB
     Indication: PRIMARY PROGRESSIVE MULTIPLE SCLEROSIS
     Route: 065
     Dates: start: 2018
  6. IBUPROFEN. [Concomitant]
     Active Substance: IBUPROFEN
  7. IDEOS UNIDIA [Concomitant]
     Active Substance: CALCIUM CARBONATE\CHOLECALCIFEROL
  8. NOLOTIL [Concomitant]
  9. DUROGESIC [Concomitant]
     Active Substance: FENTANYL
  10. DULOXETINE. [Concomitant]
     Active Substance: DULOXETINE
  11. OCRELIZUMAB. [Suspect]
     Active Substance: OCRELIZUMAB
     Indication: MULTIPLE SCLEROSIS
     Route: 042
     Dates: start: 20190718, end: 20200803
  12. PREGABALIN. [Concomitant]
     Active Substance: PREGABALIN
  13. OMEPRAZOLE. [Concomitant]
     Active Substance: OMEPRAZOLE

REACTIONS (5)
  - Paraparesis [Unknown]
  - Urinary tract infection bacterial [Fatal]
  - Septic shock [Fatal]
  - Lymphocyte count decreased [Unknown]
  - Candida infection [Fatal]

NARRATIVE: CASE EVENT DATE: 20200730
